FAERS Safety Report 25905779 (Version 1)
Quarter: 2025Q4

REPORT INFORMATION
  Report Type: Spontaneous
  Country: US (occurrence: None)
  Receive Date: 20251009
  Receipt Date: 20251009
  Transmission Date: 20260117
  Serious: No
  Sender: FDA-CTU
  Company Number: None

PATIENT
  Age: 78 Year
  Sex: Male

DRUGS (2)
  1. THALOMID [Suspect]
     Active Substance: THALIDOMIDE
     Indication: Myelodysplastic syndrome
     Dosage: FREQUENCY : DAILY;?
     Route: 048
     Dates: start: 20250324, end: 20250918
  2. DANAZOL [Suspect]
     Active Substance: DANAZOL

REACTIONS (1)
  - Thrombocytopenia [None]

NARRATIVE: CASE EVENT DATE: 20250918
